FAERS Safety Report 9581025 (Version 3)
Quarter: 2014Q1

REPORT INFORMATION
  Report Type: Spontaneous
  Country: NO (occurrence: NO)
  Receive Date: 20131002
  Receipt Date: 20140214
  Transmission Date: 20141002
  Serious: Yes (Other)
  Sender: FDA-Public Use
  Company Number: NO-PFIZER INC-2013279175

PATIENT
  Age: 76 Year
  Sex: Male

DRUGS (4)
  1. TOVIAZ [Suspect]
     Indication: HYPERTONIC BLADDER
     Dosage: 4 MG, 1X/DAY
     Route: 065
     Dates: start: 20130604, end: 20130828
  2. BETMIGA [Suspect]
  3. DUTASTERIDE/TAMSULOSIN HCL [Suspect]
  4. VESICARE [Suspect]

REACTIONS (10)
  - Atrial fibrillation [Recovered/Resolved]
  - Palpitations [Recovered/Resolved]
  - Dry mouth [Unknown]
  - Dry throat [Unknown]
  - Dry eye [Unknown]
  - Gastrooesophageal reflux disease [Unknown]
  - Drug ineffective [Unknown]
  - Faeces hard [Unknown]
  - Urinary incontinence [Unknown]
  - Vomiting [Unknown]
